FAERS Safety Report 7350989-6 (Version None)
Quarter: 2011Q1

REPORT INFORMATION
  Report Type: 
  Country: None (occurrence: None)
  Receive Date: 20110314
  Receipt Date: 20110309
  Transmission Date: 20110831
  Serious: Yes (Other)
  Sender: FDA-Public Use
  Company Number: BE-PFIZER INC-2011052547

PATIENT
  Sex: Female

DRUGS (1)
  1. SALAZOPYRIN [Suspect]
     Indication: NODAL OSTEOARTHRITIS
     Dosage: 500 MG, 2X/DAY
     Route: 048

REACTIONS (2)
  - ARTHROPATHY [None]
  - MYALGIA [None]
